FAERS Safety Report 18232128 (Version 5)
Quarter: 2020Q4

REPORT INFORMATION
  Report Type: Report from Study
  Country: US (occurrence: US)
  Receive Date: 20200904
  Receipt Date: 20201225
  Transmission Date: 20210113
  Serious: Yes (Hospitalization, Other)
  Sender: FDA-Public Use
  Company Number: NVSC2020US242835

PATIENT
  Sex: Male

DRUGS (2)
  1. ENTRESTO [Suspect]
     Active Substance: SACUBITRIL\VALSARTAN
     Indication: PRODUCT USED FOR UNKNOWN INDICATION
     Dosage: UNK UNK, BID
     Route: 048
  2. ENTRESTO [Suspect]
     Active Substance: SACUBITRIL\VALSARTAN
     Dosage: 50 MG, QD (24.26 MG)
     Route: 048

REACTIONS (13)
  - Chronic obstructive pulmonary disease [Unknown]
  - Weight increased [Unknown]
  - Fluid retention [Unknown]
  - Myocardial infarction [Unknown]
  - Underdose [Unknown]
  - Neoplasm malignant [Unknown]
  - Ejection fraction decreased [Unknown]
  - Dyspnoea [Unknown]
  - Hypotension [Unknown]
  - SARS-CoV-2 test positive [Unknown]
  - Cerebrovascular accident [Unknown]
  - Dehydration [Unknown]
  - Inappropriate schedule of product administration [Unknown]
